FAERS Safety Report 6098956-7 (Version None)
Quarter: 2009Q1

REPORT INFORMATION
  Report Type: 
  Country: None (occurrence: None)
  Receive Date: 20090302
  Receipt Date: 20090224
  Transmission Date: 20090719
  Serious: Yes (Disabling, Other)
  Sender: FDA-Public Use
  Company Number: GB-MERCK-0902GBR00112

PATIENT
  Age: 45 Year
  Sex: Female

DRUGS (6)
  1. CANCIDAS [Suspect]
     Route: 042
     Dates: start: 20090203, end: 20090203
  2. CANCIDAS [Suspect]
     Route: 042
     Dates: start: 20090204, end: 20090204
  3. PENICILLIN G [Concomitant]
     Indication: PNEUMOCOCCAL INFECTION
     Route: 042
     Dates: start: 20090125, end: 20090201
  4. HYDROCORTISONE [Concomitant]
     Indication: SEPSIS
     Route: 042
     Dates: start: 20090126, end: 20090129
  5. PABRINEX [Concomitant]
     Route: 042
     Dates: start: 20090128, end: 20090202
  6. TAZOCIN [Concomitant]
     Route: 042
     Dates: start: 20090127, end: 20090129

REACTIONS (2)
  - HYPOTENSION [None]
  - TACHYCARDIA [None]
